FAERS Safety Report 4687555-7 (Version None)
Quarter: 2005Q2

REPORT INFORMATION
  Report Type: 
  Country: None (occurrence: None)
  Receive Date: 20050207
  Receipt Date: 20050207
  Transmission Date: 20051028
  Serious: Yes (Other)
  Sender: FDA-Public Use
  Company Number: None

PATIENT
  Sex: Female

DRUGS (1)
  1. TEGRETOL [Suspect]
     Dosage: 200MG BID

REACTIONS (3)
  - ABDOMINAL PAIN [None]
  - DRUG INTOLERANCE [None]
  - VOMITING [None]
